FAERS Safety Report 20473338 (Version 3)
Quarter: 2023Q1

REPORT INFORMATION
  Report Type: Other
  Country: ES (occurrence: None)
  Receive Date: 20220215
  Receipt Date: 20230113
  Transmission Date: 20230418
  Serious: No
  Sender: FDA-Public Use
  Company Number: ES-ROCHE-3025307

PATIENT
  Age: 40 Year
  Sex: Male

DRUGS (11)
  1. OCRELIZUMAB [Suspect]
     Active Substance: OCRELIZUMAB
     Indication: Primary progressive multiple sclerosis
     Dosage: SUBSEQUENT DOSE ON 02/APR/2020
     Route: 042
     Dates: start: 20200319
  2. OCRELIZUMAB [Suspect]
     Active Substance: OCRELIZUMAB
     Dosage: SUBSEQUENT DOSE ON 02/SEP/2021, 04/MAR/2021, 02/MAR/2022, 07/SEP/2022
     Route: 042
     Dates: start: 20200903
  3. DALFAMPRIDINE [Concomitant]
     Active Substance: DALFAMPRIDINE
     Route: 048
  4. PREGABALIN [Concomitant]
     Active Substance: PREGABALIN
     Route: 048
     Dates: start: 20210209
  5. AMITRIPTYLINE [Concomitant]
     Active Substance: AMITRIPTYLINE
     Route: 048
     Dates: start: 20210302
  6. PROPIVERINE [Concomitant]
     Active Substance: PROPIVERINE
     Route: 048
     Dates: start: 20210624, end: 20220704
  7. NABIXIMOLS [Concomitant]
     Active Substance: NABIXIMOLS
     Route: 055
     Dates: start: 20210420
  8. SIBELIUM (SPAIN) [Concomitant]
     Route: 048
     Dates: start: 20211020
  9. LIORESAL [Concomitant]
     Active Substance: BACLOFEN
     Route: 048
     Dates: start: 20211118
  10. NAPROXEN SODIUM [Concomitant]
     Active Substance: NAPROXEN SODIUM
     Route: 048
     Dates: start: 20211222
  11. VORTIOXETINE [Concomitant]
     Active Substance: VORTIOXETINE
     Dates: start: 20210801

REACTIONS (1)
  - COVID-19 [Recovered/Resolved]

NARRATIVE: CASE EVENT DATE: 20211222
